FAERS Safety Report 9653652 (Version 4)
Quarter: 2014Q2

REPORT INFORMATION
  Report Type: Spontaneous
  Country: US (occurrence: None)
  Receive Date: 20131028
  Receipt Date: 20140401
  Transmission Date: 20141212
  Serious: Yes (Hospitalization)
  Sender: FDA-Public Use
  Company Number: 2013US002637

PATIENT
  Age: 63 Year
  Sex: Female
  Weight: 64.9 kg

DRUGS (22)
  1. PONATINIB [Suspect]
     Indication: CHRONIC MYELOID LEUKAEMIA
     Route: 048
     Dates: start: 20100216, end: 20131007
  2. PONATINIB [Suspect]
     Indication: HAEMATOLOGICAL MALIGNANCY
     Route: 048
     Dates: start: 20100216, end: 20131007
  3. ACETAMINOPHEN (ACETAMINOPHEN) [Concomitant]
  4. ALUMHYDROX W/MAGNCARB/MAGNHYDROX/SIMETHICONE (ALUMHYDROX W/MAGNCARB/MAGNHYDROX/SIMETHICONE) [Concomitant]
  5. CEFEPIME HYDROCHLORIDE (CEFEPIME (HYDROCHLORIDE) [Concomitant]
  6. DEXTROMETHORPHAN W/GUAIFENESIN (DEXTROMETHORPHAN W/GUAIFENESIN) [Concomitant]
  7. DIPHENOXYLATE/ATROPINE (ATROPINE SULFATE, DIPHENOXYLATE HYDROCHLORIDE) [Concomitant]
  8. HYDROCORTISONE SODIUM SUCCINATE (HYDROCORTISONE SODIUM SUCCINATE) [Concomitant]
  9. LINEZOLID (LINEZOLID) [Concomitant]
  10. TOPROL (METOPROLOL SUCCINATE) [Concomitant]
  11. MORPHINE [Concomitant]
  12. DOCUSATE SODIUM (DOCUSATE SODIUM) [Concomitant]
  13. SODIUM CHLORIDE [Concomitant]
  14. TOPAMAX (TOPIRAMATE) [Concomitant]
  15. HYDRALAZINE (HYDRALAZINE) [Concomitant]
  16. HYDROMORPHONE (HYDROMORPHONE) [Concomitant]
  17. LEVETIRACETAM (LEVETIRACETAM) [Concomitant]
  18. METHYLPREDNISOLONE SODIUM SUCCINATE (METHYLPREDNISOLONE SODIUM SUCCINATE) [Concomitant]
  19. ONDANSETRON HYDROCHLORIDE (ONDANSETRON HYDROCHLORIDE) [Concomitant]
  20. PROMETHAZINE (PROMETHAZINE) [Concomitant]
  21. VITAMIN D (COLECALCIFEROL) [Concomitant]
  22. MORPHINE SULFATE (MORPHINE SULFATE) INJECTION [Suspect]
     Dosage: PRN
     Route: 048

REACTIONS (11)
  - Infarction [None]
  - Cerebral infarction [None]
  - Visual impairment [None]
  - Cognitive disorder [None]
  - Leukocytosis [None]
  - Convulsion [None]
  - Hypertension [None]
  - Activities of daily living impaired [None]
  - Headache [None]
  - Mental status changes [None]
  - Confusional state [None]
